FAERS Safety Report 13512214 (Version 1)
Quarter: 2017Q2

REPORT INFORMATION
  Report Type: Spontaneous
  Country: US (occurrence: US)
  Receive Date: 20170503
  Receipt Date: 20170503
  Transmission Date: 20170830
  Serious: Yes (Hospitalization)
  Sender: FDA-Public Use
  Company Number: None

PATIENT
  Age: 68 Year
  Sex: Female

DRUGS (19)
  1. ALENDRONATE [Concomitant]
     Active Substance: ALENDRONATE SODIUM
  2. GABAPENTIN. [Concomitant]
     Active Substance: GABAPENTIN
  3. DIPHEN/ATROP [Concomitant]
     Active Substance: ATROPINE SULFATE\DIPHENOXYLATE
  4. PRAVASTATIN. [Concomitant]
     Active Substance: PRAVASTATIN
  5. SERTRALINE [Concomitant]
     Active Substance: SERTRALINE HYDROCHLORIDE
  6. FUROSEMIDE. [Concomitant]
     Active Substance: FUROSEMIDE
  7. MORPHINE SUL [Concomitant]
     Active Substance: MORPHINE SULFATE
  8. INCRUSE ELPT [Concomitant]
  9. OMEPRAZOLE. [Concomitant]
     Active Substance: OMEPRAZOLE
  10. VANCOMYCIN [Concomitant]
     Active Substance: VANCOMYCIN
  11. OCALIVA [Suspect]
     Active Substance: OBETICHOLIC ACID
     Indication: HYPERLIPIDAEMIA
     Route: 048
     Dates: start: 20170331
  12. ALPRAZOLAM. [Concomitant]
     Active Substance: ALPRAZOLAM
  13. GABAPENTIN. [Concomitant]
     Active Substance: GABAPENTIN
  14. SPIRONOLACT [Concomitant]
  15. URSODIOL. [Concomitant]
     Active Substance: URSODIOL
  16. FUROSEMIDE. [Concomitant]
     Active Substance: FUROSEMIDE
  17. SERTRALINE [Concomitant]
     Active Substance: SERTRALINE HYDROCHLORIDE
  18. AMLODIPINE [Concomitant]
     Active Substance: AMLODIPINE BESYLATE
  19. MONTELUKAST [Concomitant]
     Active Substance: MONTELUKAST SODIUM

REACTIONS (1)
  - Gastrointestinal infection [None]

NARRATIVE: CASE EVENT DATE: 201704
